FAERS Safety Report 12830649 (Version 1)
Quarter: 2016Q4

REPORT INFORMATION
  Report Type: Spontaneous
  Country: FR (occurrence: FR)
  Receive Date: 20161007
  Receipt Date: 20161007
  Transmission Date: 20170207
  Serious: Yes (Death, Hospitalization)
  Sender: FDA-Public Use
  Company Number: FR-JNJFOC-20161003264

PATIENT
  Age: 82 Year
  Sex: Female

DRUGS (4)
  1. IMBRUVICA [Suspect]
     Active Substance: IBRUTINIB
     Indication: CHRONIC LYMPHOCYTIC LEUKAEMIA
     Route: 048
     Dates: start: 20160830
  2. IMBRUVICA [Suspect]
     Active Substance: IBRUTINIB
     Indication: CHRONIC LYMPHOCYTIC LEUKAEMIA
     Route: 048
     Dates: start: 20160812, end: 20160828
  3. CORTANCYL [Concomitant]
     Active Substance: PREDNISONE
     Dosage: 50 MG/J
     Route: 065
     Dates: start: 20160812
  4. CORTANCYL [Concomitant]
     Active Substance: PREDNISONE
     Dosage: 45 MG/J
     Route: 065

REACTIONS (4)
  - Acute kidney injury [Fatal]
  - Atrial fibrillation [Fatal]
  - Anaemia [Fatal]
  - Thrombocytopenia [Fatal]

NARRATIVE: CASE EVENT DATE: 201608
